FAERS Safety Report 11496256 (Version 1)
Quarter: 2015Q3

REPORT INFORMATION
  Report Type: Spontaneous
  Country: IT (occurrence: IT)
  Receive Date: 20150911
  Receipt Date: 20150911
  Transmission Date: 20151125
  Serious: Yes (Hospitalization)
  Sender: FDA-Public Use
  Company Number: IT-ABBVIE-15P-083-1461059-00

PATIENT
  Age: 34 Year
  Sex: Male

DRUGS (2)
  1. TAVOR [Suspect]
     Active Substance: LORAZEPAM
     Indication: DRUG ABUSE
     Route: 048
     Dates: start: 20150521, end: 20150521
  2. DEPAKINE [Suspect]
     Active Substance: VALPROATE SODIUM
     Indication: DRUG ABUSE
     Route: 048
     Dates: start: 20150521, end: 20150521

REACTIONS (2)
  - Intentional self-injury [Unknown]
  - Drug abuse [Unknown]
